FAERS Safety Report 18092346 (Version 1)
Quarter: 2020Q3

REPORT INFORMATION
  Report Type: Spontaneous
  Country: US (occurrence: US)
  Receive Date: 20200730
  Receipt Date: 20200730
  Transmission Date: 20201103
  Serious: Yes (Hospitalization)
  Sender: FDA-Public Use
  Company Number: None

PATIENT
  Age: 78 Year
  Sex: Male
  Weight: 99 kg

DRUGS (1)
  1. DILTIAZEM (DILTIAZEM HCL 1MG/ML NACL 0.9% INJ, BAG, 125ML) [Suspect]
     Active Substance: DILTIAZEM HYDROCHLORIDE
     Indication: ATRIAL FLUTTER
     Dosage: ?          OTHER STRENGTH:1MG/ML NACL 0.9% ;?
     Dates: start: 20200530, end: 20200619

REACTIONS (5)
  - Atrial flutter [None]
  - Intestinal pseudo-obstruction [None]
  - Flank pain [None]
  - Diarrhoea [None]
  - Ileus [None]

NARRATIVE: CASE EVENT DATE: 20200618
